FAERS Safety Report 9856267 (Version 1)
Quarter: 2014Q1

REPORT INFORMATION
  Report Type: Spontaneous
  Country: US (occurrence: None)
  Receive Date: 20140129
  Receipt Date: 20140129
  Transmission Date: 20141002
  Serious: Yes (Death, Hospitalization)
  Sender: FDA-Public Use
  Company Number: 2014CT000007

PATIENT
  Sex: Female

DRUGS (2)
  1. KORLYM [Suspect]
     Indication: ADRENOCORTICAL CARCINOMA
     Route: 048
     Dates: start: 20131203
  2. MITOTANE [Concomitant]

REACTIONS (3)
  - Adrenocortical carcinoma [None]
  - Thrombosis [None]
  - Pneumonia [None]
